FAERS Safety Report 17910137 (Version 1)
Quarter: 2020Q2

REPORT INFORMATION
  Report Type: Spontaneous
  Country: US (occurrence: US)
  Receive Date: 20200618
  Receipt Date: 20200618
  Transmission Date: 20200714
  Serious: No
  Sender: FDA-Public Use
  Company Number: US-SUN PHARMACEUTICAL INDUSTRIES LTD-2019R1-219826

PATIENT
  Sex: Female

DRUGS (2)
  1. TORRENT^S ZOLPIDEM [Concomitant]
     Indication: INSOMNIA
     Dosage: 0.5 TABLET, QD
     Route: 065
     Dates: start: 201906
  2. ZOLPIDEM [Suspect]
     Active Substance: ZOLPIDEM TARTRATE
     Indication: INSOMNIA
     Dosage: UNK, QD
     Route: 065
     Dates: start: 201906

REACTIONS (4)
  - Dyspepsia [Unknown]
  - Malaise [Unknown]
  - Abdominal distension [Unknown]
  - Drug ineffective [Unknown]

NARRATIVE: CASE EVENT DATE: 201906
